FAERS Safety Report 17164095 (Version 3)
Quarter: 2020Q1

REPORT INFORMATION
  Report Type: Report from Study
  Country: ES (occurrence: ES)
  Receive Date: 20191217
  Receipt Date: 20200310
  Transmission Date: 20200409
  Serious: Yes (Hospitalization)
  Sender: FDA-Public Use
  Company Number: ES-REGENERON PHARMACEUTICALS, INC.-2019-69293

PATIENT

DRUGS (15)
  1. OMEPRAZOLE. [Concomitant]
     Active Substance: OMEPRAZOLE
     Indication: ABDOMINAL PAIN UPPER
     Dosage: 20 MG, QD
     Route: 048
  2. BETAHISTINE DIHYDROCHLORIDE [Concomitant]
     Active Substance: BETAHISTINE
     Indication: VERTIGO
     Dosage: 16 MG, QD
     Route: 048
     Dates: start: 20190909
  3. VALACYCLOVIR                       /01269701/ [Concomitant]
     Active Substance: VALACYCLOVIR HYDROCHLORIDE
     Indication: GENITAL HERPES
     Dosage: 500 MG, QD
     Route: 048
  4. METAMIZOLE [Concomitant]
     Active Substance: METAMIZOLE
     Indication: PAIN
     Dosage: 1 TABLET, PRN
     Route: 048
  5. NAPROXENO                          /00256201/ [Concomitant]
     Active Substance: NAPROXEN
     Indication: PRODUCT USED FOR UNKNOWN INDICATION
     Dosage: 550 MG, TID
     Route: 048
     Dates: start: 20191118
  6. LOPERAMIDE [Concomitant]
     Active Substance: LOPERAMIDE
     Indication: DIARRHOEA
     Dosage: 2 MG, OTHER
     Route: 048
     Dates: start: 20191118
  7. FENTANYL. [Concomitant]
     Active Substance: FENTANYL
     Indication: FIBROMYALGIA
     Dosage: 36.7 ?G, EVERY 72 HOURS
     Route: 062
  8. FENTANYL. [Concomitant]
     Active Substance: FENTANYL
     Indication: PAIN
     Dosage: 133 ?G, Q4H
     Route: 060
  9. CLONAZEPAM. [Concomitant]
     Active Substance: CLONAZEPAM
     Indication: MIXED ANXIETY AND DEPRESSIVE DISORDER
     Dosage: 2.5 (3 DROPS) GTT, QD
     Route: 048
  10. CEMIPLIMAB [Suspect]
     Active Substance: CEMIPLIMAB
     Indication: CERVIX CARCINOMA
     Dosage: 350 MG, Q3W
     Route: 042
     Dates: start: 20190916, end: 20191028
  11. GABAPENTIN. [Concomitant]
     Active Substance: GABAPENTIN
     Indication: GENITAL HERPES
     Dosage: 300 MG, BID
     Route: 048
  12. CITALOPRAM [Concomitant]
     Active Substance: CITALOPRAM HYDROBROMIDE
     Indication: MIXED ANXIETY AND DEPRESSIVE DISORDER
     Dosage: 10 MG, QD
     Route: 048
  13. TOPIRAMATE. [Concomitant]
     Active Substance: TOPIRAMATE
     Indication: HEADACHE
     Dosage: 50 MG, QD
     Route: 048
  14. ETORICOXIB. [Concomitant]
     Active Substance: ETORICOXIB
     Indication: ARTHRALGIA
     Dosage: 60 MG, QD
     Route: 048
     Dates: end: 20191028
  15. SIMVASTATIN. [Concomitant]
     Active Substance: SIMVASTATIN
     Indication: DYSLIPIDAEMIA
     Dosage: 10 MG, QD
     Route: 048

REACTIONS (1)
  - Febrile neutropenia [Recovered/Resolved]

NARRATIVE: CASE EVENT DATE: 20191123
